FAERS Safety Report 9099823 (Version 2)
Quarter: 2013Q2

REPORT INFORMATION
  Report Type: Spontaneous
  Country: US (occurrence: US)
  Receive Date: 20130214
  Receipt Date: 20130514
  Transmission Date: 20140414
  Serious: Yes (Hospitalization, Other)
  Sender: FDA-Public Use
  Company Number: US-BAYER-2013-017758

PATIENT
  Age: 32 Year
  Sex: Female
  Weight: 123.36 kg

DRUGS (5)
  1. YAZ [Suspect]
     Dosage: UNK
     Dates: start: 2005, end: 2006
  2. YASMIN [Suspect]
     Dosage: UNK
     Dates: start: 2005, end: 2006
  3. OCELLA [Suspect]
     Dosage: UNK
     Dates: start: 2005, end: 2006
  4. TRAMADOL HYDROCHLORIDE [Concomitant]
     Dosage: 200 MG, EVERY DAY
     Route: 048
     Dates: start: 20100627
  5. NAPROXEN [Concomitant]
     Dosage: 375 MG, BID
     Route: 048
     Dates: start: 20100315

REACTIONS (10)
  - Pulmonary embolism [None]
  - Pulmonary embolism [None]
  - Deep vein thrombosis [Recovered/Resolved]
  - Injury [None]
  - Pain [None]
  - Emotional distress [None]
  - General physical health deterioration [None]
  - Anxiety [None]
  - Abdominal pain [None]
  - Pain [None]
